FAERS Safety Report 9261391 (Version 1)
Quarter: 2013Q2

REPORT INFORMATION
  Report Type: Spontaneous
  Country: BE (occurrence: BE)
  Receive Date: 20130429
  Receipt Date: 20130429
  Transmission Date: 20140414
  Serious: Yes (Hospitalization)
  Sender: FDA-Public Use
  Company Number: BE-B.I. PHARMACEUTICALS,INC./RIDGEFIELD-2013-BL-00216BL

PATIENT
  Sex: Female

DRUGS (8)
  1. PRADAXA [Suspect]
     Indication: ATRIAL FIBRILLATION
     Dosage: 220 MG
     Dates: start: 20120803, end: 20130213
  2. BISOPROLOL [Concomitant]
     Indication: CARDIAC FAILURE
  3. LOSARTAN [Concomitant]
     Indication: BLOOD PRESSURE
  4. ZYRTEC [Concomitant]
     Indication: HYPERSENSITIVITY
  5. D-CURE [Concomitant]
     Indication: VITAMIN D
  6. CALCIUM [Concomitant]
     Indication: VITAMIN D
  7. LORAZEPAM [Concomitant]
     Indication: SLEEP DISORDER
  8. BURINEX [Concomitant]
     Indication: CARDIAC FAILURE
     Dosage: 2.5 MG

REACTIONS (4)
  - General physical health deterioration [Not Recovered/Not Resolved]
  - Hypotension [Not Recovered/Not Resolved]
  - Iron deficiency anaemia [Not Recovered/Not Resolved]
  - Peripheral artery thrombosis [Not Recovered/Not Resolved]
